FAERS Safety Report 26126172 (Version 1)
Quarter: 2025Q4

REPORT INFORMATION
  Report Type: Spontaneous
  Country: US (occurrence: US)
  Receive Date: 20251205
  Receipt Date: 20251205
  Transmission Date: 20260117
  Serious: No
  Sender: NOVO NORDISK
  Company Number: US-NOVOPROD-1348769

PATIENT
  Sex: Female

DRUGS (2)
  1. NOVOLIN N [Suspect]
     Active Substance: INSULIN HUMAN
     Indication: Product used for unknown indication
     Dosage: 20 IU
     Route: 058
     Dates: start: 20250107
  2. PREDNISONE [Concomitant]
     Active Substance: PREDNISONE
     Indication: Product used for unknown indication
     Dosage: UNK

REACTIONS (5)
  - Hypertension [Recovered/Resolved]
  - Product dose confusion [Recovered/Resolved]
  - Incorrect dose administered [Recovered/Resolved]
  - Product label confusion [Recovered/Resolved]
  - Product communication issue [Recovered/Resolved]

NARRATIVE: CASE EVENT DATE: 20250107
